FAERS Safety Report 15707076 (Version 1)
Quarter: 2018Q4

REPORT INFORMATION
  Report Type: Spontaneous
  Country: DK (occurrence: DK)
  Receive Date: 20181210
  Receipt Date: 20181210
  Transmission Date: 20190205
  Serious: Yes (Death, Hospitalization, Other)
  Sender: FDA-Public Use
  Company Number: DK-SSP-2018SA334883AA

PATIENT
  Age: 61 Year
  Sex: Female

DRUGS (4)
  1. RAMIPRIL. [Suspect]
     Active Substance: RAMIPRIL
     Dosage: 150 MG
  2. ZOLPIDEM TARTRATE. [Suspect]
     Active Substance: ZOLPIDEM TARTRATE
     Dosage: 200 MG
  3. VERAPAMIL HYDROCHLORIDE. [Suspect]
     Active Substance: VERAPAMIL HYDROCHLORIDE
     Dosage: 6000 MG
  4. IBUPROFEN. [Suspect]
     Active Substance: IBUPROFEN
     Dosage: 20 G

REACTIONS (9)
  - Toxicity to various agents [Fatal]
  - Nasopharyngitis [Unknown]
  - Pallor [Unknown]
  - Electrocardiogram QRS complex prolonged [Unknown]
  - Anuria [Unknown]
  - Loss of consciousness [Unknown]
  - Speech disorder [Unknown]
  - Hyperhidrosis [Unknown]
  - Overdose [Unknown]
